FAERS Safety Report 21809663 (Version 1)
Quarter: 2023Q1

REPORT INFORMATION
  Report Type: Spontaneous
  Country: BA (occurrence: BA)
  Receive Date: 20230103
  Receipt Date: 20230103
  Transmission Date: 20230417
  Serious: Yes (Death, Other)
  Sender: FDA-Public Use
  Company Number: BA-BAXTER-2022BAX031900

PATIENT
  Sex: Male

DRUGS (1)
  1. DIANEAL LOW CALCIUM WITH DEXTROSE [Suspect]
     Active Substance: CALCIUM CHLORIDE\DEXTROSE\MAGNESIUM CHLORIDE\SODIUM CHLORIDE\SODIUM LACTATE
     Indication: Peritoneal dialysis
     Route: 033

REACTIONS (7)
  - Death [Fatal]
  - Cardiac arrest [Unknown]
  - End stage renal disease [Unknown]
  - Type 2 diabetes mellitus [Unknown]
  - Enterocolitis [Unknown]
  - Diabetic complication [Unknown]
  - Cerebral disorder [Unknown]
